FAERS Safety Report 5194528-7 (Version None)
Quarter: 2006Q4

REPORT INFORMATION
  Report Type: 
  Country: None (occurrence: None)
  Receive Date: 20061222
  Receipt Date: 20061218
  Transmission Date: 20070319
  Serious: Yes (Hospitalization)
  Sender: FDA-Public Use
  Company Number: HQWYE600119DEC06

PATIENT
  Age: 47 Year
  Sex: Female

DRUGS (1)
  1. PREMARIN [Suspect]
     Indication: HORMONE REPLACEMENT THERAPY
     Dosage: 0.625MG DAILY, 21/28 DAY TREATMENT ORAL
     Route: 048

REACTIONS (1)
  - HAEMANGIOMA OF LIVER [None]
